FAERS Safety Report 12449208 (Version 14)
Quarter: 2019Q2

REPORT INFORMATION
  Report Type: Report from Study
  Country: US (occurrence: US)
  Receive Date: 20160608
  Receipt Date: 20190521
  Transmission Date: 20190711
  Serious: Yes (Life-Threatening, Hospitalization, Disabling)
  Sender: FDA-Public Use
  Company Number: US-ACTELION-A-NJ2016-137243

PATIENT
  Age: 74 Year
  Sex: Female

DRUGS (26)
  1. CRESTOR [Concomitant]
     Active Substance: ROSUVASTATIN CALCIUM
  2. OMEPRAZOLE. [Concomitant]
     Active Substance: OMEPRAZOLE
  3. DICLOXACILLIN [Concomitant]
     Active Substance: DICLOXACILLIN
  4. LASIX [Concomitant]
     Active Substance: FUROSEMIDE
  5. OXYCODONE W/PARACETAMOL [Concomitant]
     Active Substance: ACETAMINOPHEN\OXYCODONE HYDROCHLORIDE
  6. LISINOPRIL. [Concomitant]
     Active Substance: LISINOPRIL
  7. HYDROCODONE BITARTRATE AND ACETAMINOPHEN [Concomitant]
     Active Substance: ACETAMINOPHEN\HYDROCODONE BITARTRATE
  8. TRAMADOL. [Concomitant]
     Active Substance: TRAMADOL
  9. OXYCONTIN [Concomitant]
     Active Substance: OXYCODONE HYDROCHLORIDE
     Dosage: 10 MG, UNK
  10. DILTIAZEM. [Concomitant]
     Active Substance: DILTIAZEM
  11. LIDOCAINE. [Concomitant]
     Active Substance: LIDOCAINE
  12. POTASSIUM [Concomitant]
     Active Substance: POTASSIUM
  13. AMOXICILLIN + CLAV. POTASSIUM [Concomitant]
     Active Substance: AMOXICILLIN\CLAVULANATE POTASSIUM
  14. TRACLEER [Suspect]
     Active Substance: BOSENTAN
     Indication: PULMONARY ARTERIAL HYPERTENSION
     Dosage: 125 MG, UNK
     Route: 048
     Dates: start: 20120319
  15. TRACLEER [Suspect]
     Active Substance: BOSENTAN
     Dosage: 125 MG
     Route: 048
  16. LEVOTHYROXINE. [Concomitant]
     Active Substance: LEVOTHYROXINE
  17. CIPROFLOXACIN. [Concomitant]
     Active Substance: CIPROFLOXACIN
  18. CEFDINIR. [Concomitant]
     Active Substance: CEFDINIR
  19. PREDNISONE. [Concomitant]
     Active Substance: PREDNISONE
  20. AMLODIPINE [Concomitant]
     Active Substance: AMLODIPINE BESYLATE
  21. AMOXICILLIN. [Concomitant]
     Active Substance: AMOXICILLIN
  22. NEURONTIN [Concomitant]
     Active Substance: GABAPENTIN
     Dosage: 100 MG, UNK
  23. PERCOCET [Concomitant]
     Active Substance: ACETAMINOPHEN\OXYCODONE HYDROCHLORIDE
     Dosage: 10/325 MG, UNK
  24. AMLODIPINE BESYLATE. [Concomitant]
     Active Substance: AMLODIPINE BESYLATE
  25. FLUTICASONE PROPIONATE. [Concomitant]
     Active Substance: FLUTICASONE PROPIONATE
  26. HYDROCHLOROTHIAZIDE. [Concomitant]
     Active Substance: HYDROCHLOROTHIAZIDE

REACTIONS (12)
  - Post procedural complication [Recovered/Resolved]
  - Toe amputation [Recovered/Resolved]
  - Infected skin ulcer [Unknown]
  - Product dose omission [Recovered/Resolved]
  - Amputation [Unknown]
  - Thrombosis [Recovered/Resolved]
  - Urinary tract infection [Unknown]
  - Osteomyelitis [Not Recovered/Not Resolved]
  - Foot operation [Not Recovered/Not Resolved]
  - Postoperative wound infection [Unknown]
  - Skin ulcer [Unknown]
  - Leg amputation [Recovered/Resolved]

NARRATIVE: CASE EVENT DATE: 20170106
